FAERS Safety Report 22609797 (Version 1)
Quarter: 2023Q2

REPORT INFORMATION
  Report Type: Spontaneous
  Country: US (occurrence: None)
  Receive Date: 20230615
  Receipt Date: 20230615
  Transmission Date: 20230721
  Serious: Yes (Hospitalization)
  Sender: FDA-Public Use
  Company Number: None

PATIENT
  Age: 67 Year
  Sex: Female
  Weight: 87.75 kg

DRUGS (1)
  1. NERLYNX [Suspect]
     Active Substance: NERATINIB
     Dosage: FREQUENCY : DAILY;?
     Route: 048
     Dates: start: 20230202, end: 20230523

REACTIONS (3)
  - Bradycardia [None]
  - Electrolyte imbalance [None]
  - Dehydration [None]

NARRATIVE: CASE EVENT DATE: 20230523
